FAERS Safety Report 14149057 (Version 9)
Quarter: 2018Q2

REPORT INFORMATION
  Report Type: Report from Study
  Country: JP (occurrence: JP)
  Receive Date: 20171101
  Receipt Date: 20180604
  Transmission Date: 20180711
  Serious: Yes (Hospitalization)
  Sender: FDA-Public Use
  Company Number: PHJP2017JP031763

PATIENT
  Age: 73 Year
  Sex: Female
  Weight: 45.8 kg

DRUGS (21)
  1. BTZLBH589 [Suspect]
     Active Substance: BORTEZOMIB
     Indication: PLASMA CELL MYELOMA
     Dosage: 1.7 MG, QW2
     Route: 058
     Dates: start: 20161122
  2. EURASON CREAM [Suspect]
     Active Substance: DEXAMETHASONE
     Dosage: 20 MG, UNK
     Route: 048
     Dates: start: 20161227
  3. FARYDAK [Suspect]
     Active Substance: PANOBINOSTAT
     Dosage: 10 MG, QD
     Route: 048
     Dates: start: 20170606
  4. BTZLBH589 [Suspect]
     Active Substance: BORTEZOMIB
     Dosage: 1.7 MG, QW2
     Route: 058
     Dates: start: 20161227
  5. VICCLOX [Suspect]
     Active Substance: ACYCLOVIR SODIUM
     Indication: INFECTION PROPHYLAXIS
     Dosage: 200 MG, QW3
     Route: 048
     Dates: start: 20170321
  6. FARYDAK [Suspect]
     Active Substance: PANOBINOSTAT
     Dosage: 15 MG, QD
     Route: 048
     Dates: start: 20161227
  7. BTZLBH589 [Suspect]
     Active Substance: BORTEZOMIB
     Dosage: 1.7 MG, QW2
     Route: 058
     Dates: start: 20170606
  8. EURASON CREAM [Suspect]
     Active Substance: DEXAMETHASONE
     Indication: PLASMA CELL MYELOMA
     Dosage: 20 MG, UNK
     Route: 048
     Dates: start: 20161122
  9. EURASON CREAM [Suspect]
     Active Substance: DEXAMETHASONE
     Dosage: 8 MG, 20 MG, THE VELCADE ADMINISTRATION DATE AND ITS FOLLOWING DATE ORAL
     Route: 048
     Dates: start: 20171010
  10. TAKECAB [Suspect]
     Active Substance: VONOPRAZAN FUMURATE
     Indication: PROPHYLAXIS AGAINST GASTROINTESTINAL ULCER
     Dosage: 20 MG, QD
     Route: 048
     Dates: start: 20161123
  11. FARYDAK [Suspect]
     Active Substance: PANOBINOSTAT
     Indication: PLASMA CELL MYELOMA
     Dosage: 20 MG, QD (3 TIMES PER WEEK)
     Route: 048
     Dates: start: 20161122
  12. FARYDAK [Suspect]
     Active Substance: PANOBINOSTAT
     Dosage: 10 MG, QD
     Route: 048
     Dates: start: 20171010
  13. FARYDAK [Suspect]
     Active Substance: PANOBINOSTAT
     Dosage: 10 MG, QD
     Route: 048
     Dates: start: 20171014, end: 20171014
  14. BTZLBH589 [Suspect]
     Active Substance: BORTEZOMIB
     Dosage: 1.7 MG, QW2
     Route: 058
     Dates: start: 20170314
  15. BTZLBH589 [Suspect]
     Active Substance: BORTEZOMIB
     Dosage: 1.7 MG, QW2
     Route: 058
     Dates: start: 20171010
  16. OLMETEC [Suspect]
     Active Substance: OLMESARTAN MEDOXOMIL
     Indication: HYPERTENSION
     Dosage: 10 MG, QD
     Route: 048
     Dates: start: 20170301
  17. FEBURIC [Suspect]
     Active Substance: FEBUXOSTAT
     Indication: PROPHYLAXIS
     Dosage: 20 MG, QD
     Route: 048
     Dates: start: 20170718
  18. FARYDAK [Suspect]
     Active Substance: PANOBINOSTAT
     Dosage: 10 MG, QD
     Route: 048
     Dates: start: 20170314
  19. EURASON CREAM [Suspect]
     Active Substance: DEXAMETHASONE
     Dosage: 8 MG, 20 MG, THE VELCADE ADMINISTRATION DATE AND ITS FOLLOWING DATE ORAL
     Route: 048
     Dates: start: 20170314
  20. EURASON CREAM [Suspect]
     Active Substance: DEXAMETHASONE
     Dosage: 8 MG, 20 MG, THE VELCADE ADMINISTRATION DATE AND ITS FOLLOWING DATE ORAL
     Route: 048
     Dates: start: 20170606
  21. METHYCOBAL [Suspect]
     Active Substance: METHYLCOBALAMIN
     Indication: PERIPHERAL SENSORY NEUROPATHY
     Dosage: 1500 UG, TID
     Route: 048
     Dates: start: 20170110

REACTIONS (1)
  - Interstitial lung disease [Recovering/Resolving]

NARRATIVE: CASE EVENT DATE: 20171017
